FAERS Safety Report 6346885-3 (Version None)
Quarter: 2009Q3

REPORT INFORMATION
  Report Type: 
  Country: None (occurrence: None)
  Receive Date: 20090908
  Receipt Date: 20090908
  Transmission Date: 20100115
  Serious: Yes (Death, Life-Threatening, Disabling, Other)
  Sender: FDA-Public Use
  Company Number: None

PATIENT
  Age: 57 Year
  Sex: Male
  Weight: 56.6996 kg

DRUGS (1)
  1. MORPHINE [Suspect]
     Indication: COLON CANCER
     Dosage: 15 MG + 30
     Dates: start: 20090601, end: 20090701

REACTIONS (11)
  - BLOOD URINE [None]
  - DYSURIA [None]
  - INJURY [None]
  - JOINT SWELLING [None]
  - NAUSEA [None]
  - OEDEMA PERIPHERAL [None]
  - PARALYSIS [None]
  - PENILE PAIN [None]
  - SKIN ODOUR ABNORMAL [None]
  - URINE ODOUR ABNORMAL [None]
  - VICTIM OF ABUSE [None]
